FAERS Safety Report 13644962 (Version 1)
Quarter: 2017Q2

REPORT INFORMATION
  Report Type: Spontaneous
  Country: US (occurrence: US)
  Receive Date: 20170612
  Receipt Date: 20170612
  Transmission Date: 20170830
  Serious: No
  Sender: FDA-Public Use
  Company Number: US-ROCHE-800698

PATIENT
  Age: 73 Year
  Sex: Male

DRUGS (1)
  1. CAPECITABINE. [Suspect]
     Active Substance: CAPECITABINE
     Indication: SKIN CANCER METASTATIC
     Dosage: FREQUENCY: IN A SPLIT DAILY DOSE, ON 3 WEEKS ON AND 1 WEEK OFF SCHEDULE.
     Route: 065

REACTIONS (1)
  - Fatigue [Unknown]
